FAERS Safety Report 19031688 (Version 1)
Quarter: 2021Q1

REPORT INFORMATION
  Report Type: Spontaneous
  Country: US (occurrence: US)
  Receive Date: 20210319
  Receipt Date: 20210319
  Transmission Date: 20210420
  Serious: Yes (Death)
  Sender: FDA-Public Use
  Company Number: None

PATIENT
  Age: 74 Year
  Sex: Male
  Weight: 85.95 kg

DRUGS (22)
  1. XALATAN [Concomitant]
     Active Substance: LATANOPROST
  2. PATANOL [Concomitant]
     Active Substance: OLOPATADINE HYDROCHLORIDE
  3. ALPRAZOLAM. [Concomitant]
     Active Substance: ALPRAZOLAM
  4. NITROSTAT [Concomitant]
     Active Substance: NITROGLYCERIN
  5. PROPYLENE GLYCOL [Concomitant]
     Active Substance: PROPYLENE GLYCOL
  6. LOTEMAX [Concomitant]
     Active Substance: LOTEPREDNOL ETABONATE
  7. DEXAMETHASONE. [Concomitant]
     Active Substance: DEXAMETHASONE
  8. LANTUS [Concomitant]
     Active Substance: INSULIN GLARGINE
  9. RETEVMO [Suspect]
     Active Substance: SELPERCATINIB
     Indication: LUNG NEOPLASM MALIGNANT
     Route: 048
     Dates: start: 20200929, end: 20210319
  10. CETIRIZINE HCL [Concomitant]
     Active Substance: CETIRIZINE HYDROCHLORIDE
  11. BENZONATATE. [Concomitant]
     Active Substance: BENZONATATE
  12. FOLIC ACID. [Concomitant]
     Active Substance: FOLIC ACID
  13. PROCHLORPERAZINE MALEATE. [Concomitant]
     Active Substance: PROCHLORPERAZINE MALEATE
  14. MEGACE ES [Concomitant]
     Active Substance: MEGESTROL ACETATE
  15. HYDROCODONE?ACETAMINOPHEN [Concomitant]
     Active Substance: ACETAMINOPHEN\HYDROCODONE
  16. CIALIS [Concomitant]
     Active Substance: TADALAFIL
  17. SELPERCATINIB. [Concomitant]
     Active Substance: SELPERCATINIB
  18. HUMULIN R [Concomitant]
     Active Substance: INSULIN HUMAN
  19. XARELTO [Concomitant]
     Active Substance: RIVAROXABAN
  20. GABAPENTIN. [Concomitant]
     Active Substance: GABAPENTIN
  21. SIMVASTATIN. [Concomitant]
     Active Substance: SIMVASTATIN
  22. OXYCODONE HYDROCHLORIDE. [Concomitant]
     Active Substance: OXYCODONE HYDROCHLORIDE

REACTIONS (1)
  - Death [None]

NARRATIVE: CASE EVENT DATE: 20210319
